FAERS Safety Report 6093000-X (Version None)
Quarter: 2009Q1

REPORT INFORMATION
  Report Type: 
  Country: None (occurrence: None)
  Receive Date: 20090224
  Receipt Date: 20090105
  Transmission Date: 20090719
  Serious: Yes (Death, Hospitalization)
  Sender: FDA-Public Use
  Company Number: WAES0901USA00910

PATIENT
  Age: 56 Year
  Sex: Female

DRUGS (2)
  1. INDOMETHACIN [Suspect]
     Dosage: 20 CAPS, PO
     Route: 048
  2. ASPIRIN [Suspect]
     Dosage: 40 TABS, PO
     Route: 048

REACTIONS (10)
  - ANION GAP INCREASED [None]
  - ATRIAL TACHYCARDIA [None]
  - COMPLETED SUICIDE [None]
  - DRUG SCREEN POSITIVE [None]
  - DYSPNOEA [None]
  - HAEMATOCRIT INCREASED [None]
  - HYPERHIDROSIS [None]
  - PROTHROMBIN TIME SHORTENED [None]
  - RESTLESSNESS [None]
  - WHITE BLOOD CELL COUNT INCREASED [None]
